FAERS Safety Report 9726130 (Version 2)
Quarter: 2013Q4

REPORT INFORMATION
  Report Type: Spontaneous
  Country: MY (occurrence: None)
  Receive Date: 20131127
  Receipt Date: 20131203
  Transmission Date: 20140711
  Serious: Yes (Hospitalization, Other)
  Sender: FDA-Public Use
  Company Number: ENT 2013-0197

PATIENT
  Age: 64 Year
  Sex: Male

DRUGS (2)
  1. COMTAN (ENTACAPONE) [Suspect]
     Indication: PARKINSON^S DISEASE
     Dosage: 200 MG (200 MG, 5 IN 1 D)
     Route: 048
  2. MADOPAR [Concomitant]

REACTIONS (3)
  - Aggression [None]
  - Aggression [None]
  - Psychotic behaviour [None]
